FAERS Safety Report 12659178 (Version 1)
Quarter: 2016Q3

REPORT INFORMATION
  Report Type: Report from Study
  Country: US (occurrence: US)
  Receive Date: 20160817
  Receipt Date: 20160817
  Transmission Date: 20161109
  Serious: Yes (Other)
  Sender: FDA-Public Use
  Company Number: PHEH2016US020346

PATIENT
  Age: 37 Year
  Sex: Male
  Weight: 102 kg

DRUGS (1)
  1. GILENYA [Suspect]
     Active Substance: FINGOLIMOD HYDROCHLORIDE
     Indication: MULTIPLE SCLEROSIS
     Dosage: 0.5 MG, QD
     Route: 048
     Dates: start: 201505

REACTIONS (3)
  - Depression [Unknown]
  - Depressed mood [Unknown]
  - Seizure [Unknown]

NARRATIVE: CASE EVENT DATE: 20160618
